FAERS Safety Report 4696733-2 (Version None)
Quarter: 2005Q2

REPORT INFORMATION
  Report Type: 
  Country: None (occurrence: None)
  Receive Date: 20050620
  Receipt Date: 20050606
  Transmission Date: 20051028
  Serious: Yes (Hospitalization)
  Sender: FDA-Public Use
  Company Number: HQWYE306307JUN05

PATIENT
  Age: 76 Year
  Sex: Male
  Weight: 81.5 kg

DRUGS (25)
  1. RAPAMUNE [Suspect]
     Indication: PROPHYLAXIS AGAINST TRANSPLANT REJECTION
     Dosage: 9 MG 1X PER 1 DAY ORAL
     Route: 048
     Dates: start: 20050131
  2. ZENAPAX [Concomitant]
  3. PREDNISONE [Concomitant]
  4. PROGRAF [Concomitant]
  5. COUMADIN [Concomitant]
  6. LOVENOX [Concomitant]
  7. DIGOXIN [Concomitant]
  8. CIPRO [Concomitant]
  9. FLOMAX [Concomitant]
  10. FLOVENT [Concomitant]
  11. FLOVENT [Concomitant]
  12. COMBIVENT [Concomitant]
  13. ALBUTEROL [Concomitant]
  14. PROCRIT [Concomitant]
  15. ATENOLOL [Concomitant]
  16. NORVASC [Concomitant]
  17. PANCREASE (PANCRELIPASE) [Concomitant]
  18. SODIUM BICARBONATE [Concomitant]
  19. DOXAZOSIN [Concomitant]
  20. PROTONIX [Concomitant]
  21. BACTRIM [Concomitant]
  22. FLOMAX [Concomitant]
  23. CALCIUM GLUCONATE [Concomitant]
  24. PRAVACHOL [Concomitant]
  25. NOVOLOG [Concomitant]

REACTIONS (13)
  - ATRIAL FIBRILLATION [None]
  - BLEEDING TIME PROLONGED [None]
  - BLOOD CHLORIDE INCREASED [None]
  - BLOOD CREATININE INCREASED [None]
  - BLOOD GLUCOSE INCREASED [None]
  - BLOOD SODIUM INCREASED [None]
  - DEEP VEIN THROMBOSIS [None]
  - DRUG INEFFECTIVE [None]
  - HAEMATOCRIT DECREASED [None]
  - HAEMOGLOBIN DECREASED [None]
  - INTERNATIONAL NORMALISED RATIO INCREASED [None]
  - KIDNEY TRANSPLANT REJECTION [None]
  - URINARY TRACT INFECTION PSEUDOMONAL [None]
